FAERS Safety Report 6845899-4 (Version None)
Quarter: 2010Q3

REPORT INFORMATION
  Report Type: 
  Country: None (occurrence: None)
  Receive Date: 20100712
  Receipt Date: 20100629
  Transmission Date: 20110219
  Serious: Yes (Disabling, Other)
  Sender: FDA-Public Use
  Company Number: 629904

PATIENT
  Sex: Male

DRUGS (1)
  1. HEPARIN SODIUM INJECTION [Suspect]
     Indication: PERICARDITIS CONSTRICTIVE
     Dates: start: 20080326

REACTIONS (9)
  - ASTHENIA [None]
  - DECREASED ACTIVITY [None]
  - DEEP VEIN THROMBOSIS [None]
  - FOOT AMPUTATION [None]
  - GANGRENE [None]
  - HAND AMPUTATION [None]
  - HEPARIN-INDUCED THROMBOCYTOPENIA [None]
  - PAIN [None]
  - PERIPHERAL ISCHAEMIA [None]
